FAERS Safety Report 14928554 (Version 1)
Quarter: 2018Q2

REPORT INFORMATION
  Report Type: Spontaneous
  Country: US (occurrence: US)
  Receive Date: 20180523
  Receipt Date: 20180523
  Transmission Date: 20180711
  Serious: Yes (Other)
  Sender: FDA-Public Use
  Company Number: US-SCA PHARMACEUTICALS-2018SCA00001

PATIENT
  Age: 74 Year
  Sex: Male
  Weight: 141.5 kg

DRUGS (11)
  1. NOREPINEPHRINE BITARTRATE. [Suspect]
     Active Substance: NOREPINEPHRINE BITARTRATE
     Indication: HYPOTENSION
     Dosage: 30 ?G/MIN
     Route: 042
     Dates: start: 20180421, end: 2018
  2. ZOFRAN [Concomitant]
     Active Substance: ONDANSETRON HYDROCHLORIDE
  3. ZOSYN [Concomitant]
     Active Substance: PIPERACILLIN SODIUM\TAZOBACTAM SODIUM
  4. METOPROLOL. [Concomitant]
     Active Substance: METOPROLOL
  5. DUONEB [Concomitant]
     Active Substance: ALBUTEROL SULFATE\IPRATROPIUM BROMIDE
  6. HUMALOG [Concomitant]
     Active Substance: INSULIN LISPRO
     Dosage: UNK, AS NEEDED
  7. PHENYLEPHRINE INFUSION [Concomitant]
  8. AMIODARONE [Concomitant]
     Active Substance: AMIODARONE
     Route: 042
  9. HYDROCORTISONE. [Concomitant]
     Active Substance: HYDROCORTISONE
     Route: 042
  10. PROTONIX [Concomitant]
     Active Substance: PANTOPRAZOLE SODIUM
  11. LEVAQUIN [Concomitant]
     Active Substance: LEVOFLOXACIN
     Route: 042

REACTIONS (1)
  - Hypotension [Recovered/Resolved]

NARRATIVE: CASE EVENT DATE: 201804
